FAERS Safety Report 14531605 (Version 1)
Quarter: 2018Q1

REPORT INFORMATION
  Report Type: Spontaneous
  Country: US (occurrence: US)
  Receive Date: 20180213
  Receipt Date: 20180213
  Transmission Date: 20180509
  Serious: Yes (Other)
  Sender: FDA-Public Use
  Company Number: None

PATIENT
  Age: 60 Year
  Sex: Female

DRUGS (7)
  1. CRANBERRY. [Concomitant]
     Active Substance: CRANBERRY
  2. KEPPRA [Concomitant]
     Active Substance: LEVETIRACETAM
  3. MULTIVITAMIN [Concomitant]
     Active Substance: VITAMINS
  4. PROBIOTIC [Concomitant]
     Active Substance: PROBIOTICS NOS
  5. ZOFRAN [Concomitant]
     Active Substance: ONDANSETRON HYDROCHLORIDE
  6. TARCEVA [Suspect]
     Active Substance: ERLOTINIB HYDROCHLORIDE
     Indication: NEOPLASM MALIGNANT
     Route: 048
     Dates: start: 20161110
  7. MOTRIN [Concomitant]
     Active Substance: IBUPROFEN

REACTIONS (3)
  - Gastrooesophageal reflux disease [None]
  - Drug dose omission [None]
  - Diarrhoea [None]
